FAERS Safety Report 6107963-7 (Version None)
Quarter: 2009Q1

REPORT INFORMATION
  Report Type: 
  Country: None (occurrence: None)
  Receive Date: 20090309
  Receipt Date: 20090206
  Transmission Date: 20090719
  Serious: No
  Sender: FDA-Public Use
  Company Number: US-BAYER-200814178BCC

PATIENT
  Age: 49 Year
  Sex: Female
  Weight: 51 kg

DRUGS (2)
  1. ALEVE [Suspect]
     Indication: BACK PAIN
     Dosage: AS USED: 220 MG  UNIT DOSE: 220 MG
     Dates: start: 20081022
  2. OXYCODONE HCL [Concomitant]

REACTIONS (1)
  - THERMAL BURN [None]
